FAERS Safety Report 6362000-4 (Version None)
Quarter: 2009Q3

REPORT INFORMATION
  Report Type: 
  Country: None (occurrence: None)
  Receive Date: 20090916
  Receipt Date: 20090916
  Transmission Date: 20100115
  Serious: Yes (Other)
  Sender: FDA-Public Use
  Company Number: None

PATIENT
  Age: 49 Year
  Sex: Female
  Weight: 54.4316 kg

DRUGS (2)
  1. BUPROPION HCL [Suspect]
     Indication: AFFECTIVE DISORDER
     Dosage: 1 TABLET ONCE PER DAY PO
     Route: 048
     Dates: start: 20090810, end: 20090831
  2. BUPROPION HCL [Suspect]
     Indication: IRRITABLE BOWEL SYNDROME
     Dosage: 1 TABLET ONCE PER DAY PO
     Route: 048
     Dates: start: 20090810, end: 20090831

REACTIONS (2)
  - HYPERSENSITIVITY [None]
  - PRODUCT SUBSTITUTION ISSUE [None]
